FAERS Safety Report 5189668-2 (Version None)
Quarter: 2006Q4

REPORT INFORMATION
  Report Type: 
  Country: None (occurrence: None)
  Receive Date: 20061221
  Receipt Date: 20051206
  Transmission Date: 20070319
  Serious: No
  Sender: FDA-Public Use
  Company Number: US-AMGEN-US160669

PATIENT
  Sex: Female

DRUGS (7)
  1. ENBREL [Suspect]
     Indication: RHEUMATOID ARTHRITIS
     Route: 065
     Dates: start: 20051105
  2. FOLIC ACID [Concomitant]
     Route: 065
  3. OMEGA 3 [Concomitant]
     Route: 065
  4. GLUCOSAMINE [Concomitant]
     Route: 065
  5. VITAMIN CAP [Concomitant]
     Route: 065
  6. METHOTREXATE [Concomitant]
     Route: 065
  7. SYNTHROID [Concomitant]
     Route: 065

REACTIONS (2)
  - FATIGUE [None]
  - VAGINAL HAEMORRHAGE [None]
